FAERS Safety Report 9317957 (Version 1)
Quarter: 2013Q2

REPORT INFORMATION
  Report Type: Spontaneous
  Country: US (occurrence: US)
  Receive Date: 20130530
  Receipt Date: 20130530
  Transmission Date: 20140414
  Serious: No
  Sender: FDA-Public Use
  Company Number: US-GLAXOSMITHKLINE-A0997538A

PATIENT
  Age: 65 Year
  Sex: Male

DRUGS (5)
  1. VENTOLIN [Suspect]
     Indication: DYSPNOEA
     Dosage: 2PUFF FOUR TIMES PER DAY
     Dates: start: 2002
  2. ALBUTEROL NEBULIZER [Concomitant]
  3. BUDESONIDE [Concomitant]
  4. ENTOCORT [Concomitant]
  5. FLUNISOLIDE NASAL SPRAY [Concomitant]

REACTIONS (2)
  - Drug ineffective [Recovered/Resolved]
  - Product quality issue [Unknown]
